FAERS Safety Report 6332851-0 (Version None)
Quarter: 2009Q3

REPORT INFORMATION
  Report Type: 
  Country: None (occurrence: None)
  Receive Date: 20090828
  Receipt Date: 20090818
  Transmission Date: 20100115
  Serious: Yes (Other)
  Sender: FDA-Public Use
  Company Number: US-ELI_LILLY_AND_COMPANY-US200904004742

PATIENT
  Sex: Female
  Weight: 94.785 kg

DRUGS (18)
  1. BYETTA [Suspect]
     Indication: TYPE 2 DIABETES MELLITUS
     Dosage: 5 UG, 2/D
     Route: 058
     Dates: start: 20080602, end: 20080701
  2. BYETTA [Suspect]
     Dosage: 10 UG, 2/M
     Route: 058
     Dates: start: 20080701
  3. CRESTOR [Concomitant]
     Indication: BLOOD CHOLESTEROL INCREASED
     Dosage: UNK, UNKNOWN
     Dates: end: 20080101
  4. GLIPIZIDE [Concomitant]
     Indication: TYPE 2 DIABETES MELLITUS
     Dosage: 10 MG, 2/D
     Route: 048
     Dates: end: 20080601
  5. GLIPIZIDE [Concomitant]
     Dosage: 10 MG, DAILY (1/D)
     Route: 048
     Dates: start: 20080602
  6. ATENOLOL [Concomitant]
     Dosage: 50 MG, 2/D
     Route: 048
  7. AVAPRO [Concomitant]
     Dosage: 150 MG, 2/D
     Route: 048
  8. PERPHENAZINE AND AMITRIPTYLINE HCL [Concomitant]
     Indication: PANIC ATTACK
     Dosage: UNK, OTHER
  9. XANAX [Concomitant]
     Indication: PANIC ATTACK
     Dosage: 0.25 MG, OTHER
     Route: 048
  10. NORVASC [Concomitant]
     Dosage: 10 MG, 2/D
     Route: 048
  11. ASPIRIN [Concomitant]
     Dosage: 81 MG, DAILY (1/D)
     Route: 048
  12. LASIX [Concomitant]
     Indication: SWELLING
     Dosage: 40 MG, 2/D
     Route: 048
     Dates: end: 20090101
  13. LASIX [Concomitant]
     Dosage: 40 MG, DAILY (1/D)
     Route: 048
     Dates: start: 20090101
  14. PLAVIX [Concomitant]
     Indication: STENT PLACEMENT
     Dosage: 75 MG, DAILY (1/D)
     Route: 048
  15. IRON [Concomitant]
     Dosage: 65 MG, UNKNOWN
  16. SUPER B COMPLEX [Concomitant]
     Dosage: UNK, UNKNOWN
  17. IMDUR [Concomitant]
     Dosage: 60 MG, DAILY (1/D)
     Route: 048
  18. CHOLESTYRAMINE [Concomitant]
     Dosage: UNK, UNKNOWN

REACTIONS (6)
  - BLOOD CHOLESTEROL [None]
  - BONE DENSITY DECREASED [None]
  - BREAST NEOPLASM [None]
  - GASTROOESOPHAGEAL REFLUX DISEASE [None]
  - INCISION SITE INFECTION [None]
  - LIVER DISORDER [None]
